FAERS Safety Report 5126958-3 (Version None)
Quarter: 2006Q4

REPORT INFORMATION
  Report Type: 
  Country: None (occurrence: None)
  Receive Date: 20061013
  Receipt Date: 20060829
  Transmission Date: 20070319
  Serious: Yes (Other)
  Sender: FDA-Public Use
  Company Number: US-AMGEN-KDL191769

PATIENT
  Sex: Female

DRUGS (5)
  1. ENBREL [Suspect]
     Indication: PSORIATIC ARTHROPATHY
     Route: 058
     Dates: start: 20050428, end: 20051121
  2. SOMA [Concomitant]
     Dates: start: 20050901
  3. LUNESTA [Concomitant]
     Dates: start: 20051101
  4. HUMIRA [Concomitant]
     Dates: start: 20051121
  5. ALEVE [Concomitant]
     Dates: start: 20060120

REACTIONS (4)
  - ANTINUCLEAR ANTIBODY POSITIVE [None]
  - CUTANEOUS LUPUS ERYTHEMATOSUS [None]
  - ERYTHEMA [None]
  - PRURITUS [None]
